FAERS Safety Report 7881090-0 (Version None)
Quarter: 2011Q4

REPORT INFORMATION
  Report Type: 
  Country: None (occurrence: None)
  Receive Date: 20111101
  Receipt Date: 20111022
  Transmission Date: 20120403
  Serious: Yes (Other)
  Sender: FDA-Public Use
  Company Number: US-CELGENEUS-163-21880-11102669

PATIENT
  Age: 11 Year
  Sex: Male
  Weight: 39.3 kg

DRUGS (4)
  1. LENALIDOMIDE [Suspect]
     Dosage: 116 MILLIGRAM/SQ. METER
     Route: 048
     Dates: start: 20110101
  2. LENALIDOMIDE [Suspect]
     Indication: GLIOMATOSIS CEREBRI
     Dosage: 32 MILLIGRAM/SQ. METER
     Route: 048
     Dates: start: 20110512, end: 20110628
  3. VALPROIC ACID [Concomitant]
     Dosage: 500 MILLIGRAM
     Route: 065
  4. VALPROIC ACID [Concomitant]
     Dosage: 450 MILLIGRAM
     Route: 065
     Dates: start: 20110524

REACTIONS (5)
  - KERATITIS [None]
  - ANTICONVULSANT DRUG LEVEL INCREASED [None]
  - RADIATION SKIN INJURY [None]
  - CONJUNCTIVITIS [None]
  - ALOPECIA [None]
